FAERS Safety Report 7565822-7 (Version None)
Quarter: 2011Q2

REPORT INFORMATION
  Report Type: 
  Country: None (occurrence: None)
  Receive Date: 20110623
  Receipt Date: 20110616
  Transmission Date: 20111010
  Serious: No
  Sender: FDA-Public Use
  Company Number: US-PFIZER INC-2011132834

PATIENT
  Sex: Male
  Weight: 79.5 kg

DRUGS (1)
  1. DEPO-TESTOSTERONE [Suspect]
     Indication: BLOOD TESTOSTERONE DECREASED
     Dosage: UNK
     Dates: start: 20110501, end: 20110607

REACTIONS (4)
  - PALPITATIONS [None]
  - FEAR [None]
  - ANXIETY [None]
  - DYSPNOEA [None]
